FAERS Safety Report 21810171 (Version 1)
Quarter: 2023Q1

REPORT INFORMATION
  Report Type: Report from Study
  Country: GR (occurrence: GR)
  Receive Date: 20230103
  Receipt Date: 20230103
  Transmission Date: 20230417
  Serious: Yes (Hospitalization, Other)
  Sender: FDA-Public Use
  Company Number: GR-ABBVIE-4256008

PATIENT
  Age: 72 Year
  Sex: Female
  Weight: 70 kg

DRUGS (3)
  1. VENETOCLAX [Suspect]
     Active Substance: VENETOCLAX
     Indication: Acute myeloid leukaemia
     Route: 048
     Dates: start: 20221114, end: 20221124
  2. AMPHOTERICIN B [Suspect]
     Active Substance: AMPHOTERICIN B
     Indication: Product used for unknown indication
     Route: 065
  3. AZACITIDINE [Suspect]
     Active Substance: AZACITIDINE
     Indication: Acute myeloid leukaemia
     Route: 058
     Dates: start: 20221114, end: 20221120

REACTIONS (11)
  - Cerebrovascular accident [Recovering/Resolving]
  - Fistula [Not Recovered/Not Resolved]
  - Fall [Recovered/Resolved]
  - Lung infiltration [Unknown]
  - Pyrexia [Unknown]
  - COVID-19 [Recovered/Resolved]
  - Atrial fibrillation [Recovered/Resolved]
  - Head injury [Recovered/Resolved]
  - Blood potassium decreased [Recovered/Resolved]
  - Diverticulitis [Not Recovered/Not Resolved]
  - Ischaemia [Recovering/Resolving]

NARRATIVE: CASE EVENT DATE: 20221119
